FAERS Safety Report 4597227-5 (Version None)
Quarter: 2005Q1

REPORT INFORMATION
  Report Type: 
  Country: None (occurrence: None)
  Receive Date: 20050301
  Receipt Date: 20050215
  Transmission Date: 20050727
  Serious: Yes (Hospitalization)
  Sender: FDA-Public Use
  Company Number: 2005033482

PATIENT
  Age: 49 Year
  Sex: Female

DRUGS (3)
  1. VFEND [Suspect]
     Indication: MUCOCUTANEOUS CANDIDIASIS
     Dates: start: 20050213, end: 20050201
  2. SERTRALINE HCL [Concomitant]
  3. ALL OTHER THERAPEUTIC PRODUCTS [Concomitant]

REACTIONS (7)
  - AGITATION [None]
  - COLOUR BLINDNESS [None]
  - CONFUSIONAL STATE [None]
  - FEELING ABNORMAL [None]
  - MUSCLE SPASMS [None]
  - PANIC REACTION [None]
  - PHOTOPHOBIA [None]
